FAERS Safety Report 23117857 (Version 3)
Quarter: 2023Q4

REPORT INFORMATION
  Report Type: Spontaneous
  Country: JP (occurrence: JP)
  Receive Date: 20231027
  Receipt Date: 20231115
  Transmission Date: 20240110
  Serious: No
  Sender: FDA-Public Use
  Company Number: JP-PFIZER INC-PV202300174313

PATIENT
  Age: 94 Year
  Sex: Female
  Weight: 40 kg

DRUGS (4)
  1. PAXLOVID [Suspect]
     Active Substance: NIRMATRELVIR\RITONAVIR
     Indication: COVID-19 treatment
     Dosage: 5 PACKS
     Route: 048
     Dates: start: 20231020, end: 20231021
  2. CARBOCYSTEINE [Concomitant]
     Active Substance: CARBOCYSTEINE
     Dosage: 500 MG, 3X/DAY
     Route: 048
     Dates: start: 20231020, end: 20231021
  3. CALONAL [Concomitant]
     Active Substance: ACETAMINOPHEN
     Dosage: 2 DF ONCE, AS NEEDED
     Route: 048
     Dates: start: 20231020, end: 20231021
  4. CHIKUJOUNTANTO [Concomitant]
     Dosage: 3 PACKS/DAY
     Route: 048
     Dates: start: 20231020, end: 20231025

REACTIONS (1)
  - Overdose [Unknown]

NARRATIVE: CASE EVENT DATE: 20231020
